FAERS Safety Report 6883191-2 (Version None)
Quarter: 2010Q3

REPORT INFORMATION
  Report Type: 
  Country: None (occurrence: None)
  Receive Date: 20100727
  Receipt Date: 20071024
  Transmission Date: 20110219
  Serious: Yes (Hospitalization, Other)
  Sender: FDA-Public Use
  Company Number: US-PFIZER INC-2006105732

PATIENT
  Sex: Male
  Weight: 81.6 kg

DRUGS (6)
  1. CELEBREX [Suspect]
     Indication: PAIN
     Dates: start: 20040401
  2. VIOXX [Suspect]
     Indication: OSTEOARTHRITIS
     Route: 048
     Dates: start: 20040401
  3. ATENOLOL [Concomitant]
     Dates: start: 19900101, end: 20070701
  4. NITROGLYCERIN [Concomitant]
     Dates: start: 19970101
  5. LIPITOR [Concomitant]
     Indication: BLOOD CHOLESTEROL INCREASED
     Dates: start: 19980101
  6. HYDROCODONE BITARTRATE [Concomitant]
     Dates: start: 20030101

REACTIONS (3)
  - ABDOMINAL PAIN UPPER [None]
  - DIARRHOEA [None]
  - MYOCARDIAL INFARCTION [None]
